FAERS Safety Report 8059280-6 (Version None)
Quarter: 2012Q1

REPORT INFORMATION
  Report Type: 
  Country: None (occurrence: None)
  Receive Date: 20120119
  Receipt Date: 20120119
  Transmission Date: 20120608
  Serious: Yes (Other)
  Sender: FDA-Public Use
  Company Number: None

PATIENT
  Age: 60 Year
  Sex: Female

DRUGS (2)
  1. LATUDA [Suspect]
     Indication: BIPOLAR I DISORDER
     Dosage: 40 MG 1 PO QAM ORAL
     Route: 048
     Dates: start: 20110629, end: 20110719
  2. LATUDA [Suspect]
     Indication: PSYCHOTIC DISORDER
     Dosage: 40 MG 1 PO QAM ORAL
     Route: 048
     Dates: start: 20110629, end: 20110719

REACTIONS (1)
  - URTICARIA [None]
